FAERS Safety Report 9645441 (Version 1)
Quarter: 2013Q4

REPORT INFORMATION
  Report Type: Spontaneous
  Country: NO (occurrence: NO)
  Receive Date: 20131025
  Receipt Date: 20131025
  Transmission Date: 20140711
  Serious: Yes (Life-Threatening)
  Sender: FDA-Public Use
  Company Number: NO-BAXTER-2013BAX041424

PATIENT
  Age: 50 Year
  Sex: 0

DRUGS (8)
  1. KIOVIG 100 MG/ML INFUUSIONESTE, LIUOS, [Suspect]
     Indication: HYPOGAMMAGLOBULINAEMIA
     Route: 051
     Dates: start: 20131008, end: 20131008
  2. BACTRIM [Suspect]
     Indication: PNEUMONIA
     Dosage: 4 AMP. 400/80
     Route: 065
     Dates: start: 20131008, end: 20131008
  3. CLAFORAN [Concomitant]
     Indication: PRODUCT USED FOR UNKNOWN INDICATION
     Route: 065
     Dates: start: 20131007
  4. SOLU-CORTEF [Concomitant]
     Indication: PRODUCT USED FOR UNKNOWN INDICATION
     Route: 065
     Dates: start: 20131007
  5. MIDAZOLAM [Concomitant]
     Indication: SEDATION
     Route: 065
  6. SOMAC [Concomitant]
     Indication: PRODUCT USED FOR UNKNOWN INDICATION
     Route: 065
     Dates: start: 20131007
  7. FENTANYL [Concomitant]
     Indication: SEDATION
     Route: 065
  8. ABBOTICIN [Concomitant]
     Indication: PRODUCT USED FOR UNKNOWN INDICATION
     Route: 065
     Dates: start: 20131006

REACTIONS (5)
  - Hypersensitivity [Recovered/Resolved]
  - Bronchospasm [Recovered/Resolved]
  - Flushing [Recovered/Resolved]
  - Pharyngeal oedema [Recovered/Resolved]
  - Swollen tongue [Recovered/Resolved]
